FAERS Safety Report 4706186-3 (Version None)
Quarter: 2005Q2

REPORT INFORMATION
  Report Type: 
  Country: None (occurrence: None)
  Receive Date: 20050629
  Receipt Date: 20050520
  Transmission Date: 20051028
  Serious: Yes (Hospitalization)
  Sender: FDA-Public Use
  Company Number: 05P-163-0300948-00

PATIENT
  Age: 69 Year
  Sex: Female
  Weight: 47.6277 kg

DRUGS (5)
  1. HUMIRA [Suspect]
     Indication: RHEUMATOID ARTHRITIS
     Dosage: 40 MG, 1 IN 2 WK, SUBCUTANEOUS
     Route: 058
     Dates: start: 20030901
  2. PREDNISONE TAB [Concomitant]
  3. FOLIC ACID [Concomitant]
  4. LEVOTHYROXINE SODIUM [Concomitant]
  5. FEXOFENADINE HYDROCHLORIDE [Concomitant]

REACTIONS (2)
  - FALL [None]
  - HIP FRACTURE [None]
